FAERS Safety Report 4909925-1 (Version None)
Quarter: 2006Q1

REPORT INFORMATION
  Report Type: 
  Country: None (occurrence: None)
  Receive Date: 20060208
  Receipt Date: 20060126
  Transmission Date: 20060701
  Serious: Yes (Hospitalization)
  Sender: FDA-Public Use
  Company Number: 2006017072

PATIENT
  Age: 57 Year
  Sex: Female

DRUGS (6)
  1. ATARAX [Suspect]
     Indication: ANXIETY
     Dosage: 50 MG, ORAL
     Route: 048
  2. ACETAMINOPHEN [Suspect]
     Indication: ILL-DEFINED DISORDER
     Dosage: ORAL
     Route: 048
  3. TERBUTALINE SULFATE [Suspect]
     Indication: ASTHMA
     Dosage: 2 DF, OTHER
     Route: 050
     Dates: start: 20000101
  4. IPRATROPIUM BROMIDE [Suspect]
     Indication: ASTHMA
     Dosage: 2 DF, OTHER
     Route: 050
     Dates: start: 20000101
  5. FLUTICASONE PROPIONATE [Suspect]
     Indication: ASTHMA
     Dosage: 2 DF, OTHER
     Route: 050
     Dates: start: 20000101
  6. MONTELUKAST (MONTELUKAST) [Suspect]
     Indication: ASTHMA
     Dosage: ORAL
     Route: 048
     Dates: start: 20030101, end: 20050901

REACTIONS (2)
  - ALLERGIC GRANULOMATOUS ANGIITIS [None]
  - GENERAL PHYSICAL HEALTH DETERIORATION [None]
